FAERS Safety Report 16276333 (Version 4)
Quarter: 2019Q4

REPORT INFORMATION
  Report Type: Spontaneous
  Country: US (occurrence: US)
  Receive Date: 20190506
  Receipt Date: 20191011
  Transmission Date: 20200122
  Serious: Yes (Life-Threatening, Hospitalization)
  Sender: FDA-Public Use
  Company Number: US-PFIZER INC-2019177720

PATIENT
  Age: 58 Year
  Sex: Male

DRUGS (13)
  1. MS CONTIN [Interacting]
     Active Substance: MORPHINE SULFATE
     Indication: NECK PAIN
     Dosage: 60 MG, 2X/DAY (EXTENDED RELEASE)
     Route: 048
  2. MS CONTIN [Interacting]
     Active Substance: MORPHINE SULFATE
     Indication: BACK PAIN
     Dosage: 60 MG, 2X/DAY (EXTRA DOSE, EXTENDED RELEASE, 3-4 HOURS BEFORE COMING TO THE HOSPITAL)
     Route: 048
  3. PERCOCET [Suspect]
     Active Substance: ACETAMINOPHEN\OXYCODONE HYDROCHLORIDE
     Indication: NECK PAIN
     Dosage: 10/325 MG FOUR TIMES A DAY AS NEEDED
     Route: 048
  4. METFORMIN [Concomitant]
     Active Substance: METFORMIN HYDROCHLORIDE
     Indication: TYPE 2 DIABETES MELLITUS
     Dosage: UNK
  5. INSULIN [Concomitant]
     Active Substance: INSULIN NOS
     Indication: TYPE 2 DIABETES MELLITUS
     Dosage: UNK (INSULIN WITH MEALS)
  6. PERCOCET [Suspect]
     Active Substance: ACETAMINOPHEN\OXYCODONE HYDROCHLORIDE
     Indication: BACK PAIN
  7. OMEPRAZOLE. [Concomitant]
     Active Substance: OMEPRAZOLE
     Indication: GASTROOESOPHAGEAL REFLUX DISEASE
     Dosage: 40 MG, 1X/DAY
     Route: 048
  8. GABAPENTIN. [Suspect]
     Active Substance: GABAPENTIN
     Indication: NECK PAIN
     Dosage: 1000 MG, 3X/DAY
     Route: 048
  9. GABAPENTIN. [Interacting]
     Active Substance: GABAPENTIN
     Indication: BACK PAIN
     Dosage: 300 MG, UNK (NASOGASTRIC TUBE)
     Route: 048
  10. GABAPENTIN. [Interacting]
     Active Substance: GABAPENTIN
     Dosage: 600 MG, 3X/DAY (VIA PEG TUBE)
     Route: 048
  11. VALSARTAN. [Concomitant]
     Active Substance: VALSARTAN
     Indication: HYPERTENSION
     Dosage: 160 MG, 1X/DAY
     Route: 048
  12. LEVOTHYROXINE. [Concomitant]
     Active Substance: LEVOTHYROXINE
     Indication: HYPOTHYROIDISM
     Dosage: 100 MG, 1X/DAY
     Route: 048
  13. NIACIN. [Concomitant]
     Active Substance: NIACIN
     Indication: HYPERLIPIDAEMIA
     Dosage: UNK

REACTIONS (2)
  - Drug interaction [Unknown]
  - Encephalopathy [Recovered/Resolved]
